FAERS Safety Report 14902393 (Version 1)
Quarter: 2018Q2

REPORT INFORMATION
  Report Type: Spontaneous
  Country: US (occurrence: US)
  Receive Date: 20180516
  Receipt Date: 20180516
  Transmission Date: 20180711
  Serious: No
  Sender: FDA-Public Use
  Company Number: US-ASTRAZENECA-2003UW06729

PATIENT
  Age: 56 Year
  Sex: Male
  Weight: 77.1 kg

DRUGS (7)
  1. ESOMEPRAZOLE [Suspect]
     Active Substance: ESOMEPRAZOLE
     Indication: GASTROOESOPHAGEAL REFLUX DISEASE
     Route: 048
  2. CRESTOR [Suspect]
     Active Substance: ROSUVASTATIN CALCIUM
     Indication: BLOOD CHOLESTEROL INCREASED
     Dosage: GENERIC 5 MG, DAILY
     Route: 048
     Dates: start: 2018, end: 2018
  3. CRESTOR [Suspect]
     Active Substance: ROSUVASTATIN CALCIUM
     Indication: BLOOD CHOLESTEROL INCREASED
     Route: 048
     Dates: end: 2018
  4. TESTOSTERONE. [Concomitant]
     Active Substance: TESTOSTERONE
  5. CRESTOR [Suspect]
     Active Substance: ROSUVASTATIN CALCIUM
     Indication: ATRIOVENTRICULAR BLOCK
     Route: 048
     Dates: end: 2018
  6. CRESTOR [Suspect]
     Active Substance: ROSUVASTATIN CALCIUM
     Indication: ATRIOVENTRICULAR BLOCK
     Dosage: GENERIC 5 MG, DAILY
     Route: 048
     Dates: start: 2018, end: 2018
  7. CALCIUM [Concomitant]
     Active Substance: CALCIUM

REACTIONS (5)
  - Pain in extremity [Recovered/Resolved]
  - Back pain [Unknown]
  - Throat irritation [Unknown]
  - Muscle disorder [Recovering/Resolving]
  - Tongue discomfort [Unknown]
